FAERS Safety Report 7315221-8 (Version None)
Quarter: 2011Q1

REPORT INFORMATION
  Report Type: 
  Country: None (occurrence: None)
  Receive Date: 20110225
  Receipt Date: 20110217
  Transmission Date: 20110831
  Serious: Yes (Hospitalization)
  Sender: FDA-Public Use
  Company Number: IT-ROCHE-749510

PATIENT
  Sex: Male
  Weight: 83 kg

DRUGS (10)
  1. BLINDED BEVACIZUMAB [Suspect]
     Indication: GLIOBLASTOMA
     Dosage: DECISION TO STOP MADE 1 DEC 2010, PATIENT EXCLUDED FROM THE STUDY.
     Route: 042
     Dates: start: 20100408, end: 20101118
  2. TEMOZOLOMIDE [Suspect]
     Indication: GLIOBLASTOMA
     Dosage: DECISION TO STOP MADE 1 DEC 2010, PATIENT EXCLUDED FORM THE PROTOCOL.FREQUENCY REPORTED:MONTHLY
     Route: 048
     Dates: start: 20100408, end: 20101108
  3. DEXAMETHASONE [Concomitant]
     Dates: start: 20110114, end: 20110216
  4. TEMODAL [Concomitant]
     Dates: start: 20101202, end: 20101216
  5. ENALAPRIL MALEATE [Concomitant]
     Dosage: DOSE INCREASED.
     Dates: start: 20101217, end: 20110114
  6. LEVETIRACETAM [Concomitant]
     Dates: start: 20101216
  7. OMEPRAZOLE [Concomitant]
     Dates: start: 20101217
  8. ENALAPRIL MALEATE [Concomitant]
     Dates: start: 20100929, end: 20101116
  9. ENALAPRIL MALEATE [Concomitant]
     Dates: start: 20110115, end: 20110119
  10. CCNU [Concomitant]
     Dates: start: 20110216, end: 20110216

REACTIONS (1)
  - CONVULSION [None]
